FAERS Safety Report 4394696-0 (Version None)
Quarter: 2004Q3

REPORT INFORMATION
  Report Type: 
  Country: None (occurrence: None)
  Receive Date: 20040706
  Receipt Date: 20040623
  Transmission Date: 20050211
  Serious: Yes (Hospitalization)
  Sender: FDA-Public Use
  Company Number: 2004042435

PATIENT
  Age: 83 Year
  Sex: Female

DRUGS (12)
  1. NITROSTAT [Suspect]
     Indication: HEART RATE INCREASED
     Dosage: AS NEEDED; SUBGLINGUAL
     Route: 060
  2. MORPHINE [Suspect]
     Indication: ILL-DEFINED DISORDER
  3. GLYBURIDE [Concomitant]
  4. VERAPAMIL [Concomitant]
  5. HYDROCHLOROTHIAZIDE [Concomitant]
  6. SIMVASTATIN [Concomitant]
  7. PANTOPRAZOLE (PANTOPRAZOLE) [Concomitant]
  8. ACETYLSALICYLIC ACID SRT [Concomitant]
  9. CONJUGATED ESTROGENS [Concomitant]
  10. GLUCOSAMINE (GLUCOSAMINE) [Concomitant]
  11. IRBESARTAN (IRBESARTAN) [Concomitant]
  12. FOLIC ACID [Concomitant]

REACTIONS (12)
  - BLADDER OPERATION [None]
  - CARDIAC FAILURE CONGESTIVE [None]
  - DISEASE RECURRENCE [None]
  - HAEMORRHOIDS [None]
  - HEART RATE INCREASED [None]
  - LOSS OF CONSCIOUSNESS [None]
  - MEDICATION ERROR [None]
  - MEMORY IMPAIRMENT [None]
  - NEURALGIA [None]
  - PHARMACEUTICAL PRODUCT COMPLAINT [None]
  - PNEUMONIA [None]
  - THROMBOSIS [None]
